FAERS Safety Report 5344035-3 (Version None)
Quarter: 2007Q2

REPORT INFORMATION
  Report Type: 
  Country: None (occurrence: None)
  Receive Date: 20070604
  Receipt Date: 20070531
  Transmission Date: 20071010
  Serious: Yes (Hospitalization)
  Sender: FDA-Public Use
  Company Number: US-BRISTOL-MYERS SQUIBB COMPANY-13792064

PATIENT
  Age: 67 Year
  Sex: Male
  Weight: 82 kg

DRUGS (3)
  1. CISPLATIN [Suspect]
     Indication: TONSIL CANCER
     Route: 042
     Dates: start: 20070402, end: 20070402
  2. RADIATION THERAPY [Suspect]
     Indication: TONSIL CANCER
     Dates: start: 20070427, end: 20070427
  3. FENTANYL TRANSDERMAL SYSTEM [Concomitant]
     Indication: PAIN
     Dates: start: 20070401

REACTIONS (4)
  - NAUSEA [None]
  - ORAL PAIN [None]
  - STOMATITIS [None]
  - VOMITING [None]
